FAERS Safety Report 22638698 (Version 1)
Quarter: 2023Q2

REPORT INFORMATION
  Report Type: Spontaneous
  Country: ES (occurrence: ES)
  Receive Date: 20230626
  Receipt Date: 20230626
  Transmission Date: 20230722
  Serious: Yes (Other)
  Sender: FDA-Public Use
  Company Number: ES-AEMPS-1381870

PATIENT
  Age: 36 Year
  Sex: Female

DRUGS (3)
  1. ALPRAZOLAM [Interacting]
     Active Substance: ALPRAZOLAM
     Indication: Insomnia
     Dosage: 1 MILLIGRAM
     Route: 048
     Dates: start: 20230421, end: 20230421
  2. DIAZEPAM [Interacting]
     Active Substance: DIAZEPAM
     Indication: Insomnia
     Dosage: 5 MILLIGRAM
     Route: 048
     Dates: start: 20230421, end: 20230421
  3. LORAZEPAM [Interacting]
     Active Substance: LORAZEPAM
     Indication: Insomnia
     Dosage: 2 MILLIGRAM
     Route: 048
     Dates: start: 20230421, end: 20230421

REACTIONS (2)
  - Depressed level of consciousness [Recovered/Resolved]
  - Intentional overdose [Recovered/Resolved]

NARRATIVE: CASE EVENT DATE: 20230421
